FAERS Safety Report 9007243 (Version 4)
Quarter: 2014Q3

REPORT INFORMATION
  Report Type: Report from Study
  Country: JP (occurrence: JP)
  Receive Date: 20130110
  Receipt Date: 20140923
  Transmission Date: 20150326
  Serious: Yes (Hospitalization, Other)
  Sender: FDA-Public Use
  Company Number: JP-ROCHE-1176132

PATIENT
  Age: 83 Year
  Sex: Female
  Weight: 37.05 kg

DRUGS (22)
  1. BAYASPIRIN [Concomitant]
     Active Substance: ASPIRIN
     Route: 065
     Dates: start: 20110119
  2. HALFDIGOXIN KY [Concomitant]
     Route: 065
     Dates: start: 20110119
  3. PARIET [Concomitant]
     Active Substance: RABEPRAZOLE SODIUM
     Route: 065
     Dates: start: 20110119
  4. KAYEXALATE [Concomitant]
     Active Substance: SODIUM POLYSTYRENE SULFONATE
     Route: 065
     Dates: start: 20110119
  5. OMALIZUMAB [Suspect]
     Active Substance: OMALIZUMAB
     Route: 065
     Dates: start: 20110215
  6. ALVESCO [Concomitant]
     Active Substance: CICLESONIDE
     Route: 065
     Dates: start: 20110119
  7. HERBESSER [Concomitant]
     Active Substance: DILTIAZEM HYDROCHLORIDE
     Route: 065
     Dates: start: 20110119
  8. AZULENE [Concomitant]
     Active Substance: AZULENE
     Route: 065
     Dates: start: 20110119
  9. OMALIZUMAB [Suspect]
     Active Substance: OMALIZUMAB
     Route: 065
     Dates: start: 20110412
  10. SIGMART [Concomitant]
     Active Substance: NICORANDIL
     Route: 065
     Dates: start: 20110119
  11. PREDONINE [Concomitant]
     Active Substance: PREDNISOLONE\PREDNISOLONE ACETATE\PREDNISOLONE SODIUM SUCCINATE
     Route: 065
     Dates: start: 20110119
  12. MUCOSOLVAN [Concomitant]
     Active Substance: AMBROXOL\CLENBUTEROL
     Route: 065
     Dates: start: 20110119
  13. BIOFERMIN [Concomitant]
     Active Substance: BACILLUS SUBTILIS\LACTOBACILLUS ACIDOPHILUS\STREPTOCOCCUS FAECAIS
     Route: 065
     Dates: start: 20110119
  14. OMALIZUMAB [Suspect]
     Active Substance: OMALIZUMAB
     Indication: ASTHMA
     Route: 058
     Dates: start: 20100928
  15. OMALIZUMAB [Suspect]
     Active Substance: OMALIZUMAB
     Route: 065
     Dates: start: 20101221
  16. NITRODERM [Concomitant]
     Active Substance: NITROGLYCERIN
     Route: 065
     Dates: start: 20110116
  17. AZULENE [Concomitant]
     Active Substance: AZULENE
     Route: 065
     Dates: start: 20101130, end: 20101202
  18. OMALIZUMAB [Suspect]
     Active Substance: OMALIZUMAB
     Route: 065
     Dates: start: 20101124
  19. SINGULAIR [Concomitant]
     Active Substance: MONTELUKAST SODIUM
     Route: 065
     Dates: start: 20110119
  20. KETAS [Concomitant]
     Active Substance: IBUDILAST
     Route: 065
     Dates: start: 20110119
  21. OMALIZUMAB [Suspect]
     Active Substance: OMALIZUMAB
     Route: 065
     Dates: start: 20110531
  22. OMALIZUMAB [Suspect]
     Active Substance: OMALIZUMAB
     Route: 065
     Dates: start: 20110916

REACTIONS (10)
  - Peripheral swelling [Unknown]
  - White blood cell count increased [Unknown]
  - Asthma [Recovered/Resolved]
  - Cellulitis [Unknown]
  - C-reactive protein increased [Unknown]
  - Erythema [Unknown]
  - Gastroenteritis [Recovered/Resolved]
  - Pneumonia [Recovered/Resolved]
  - Chondrocalcinosis pyrophosphate [Recovering/Resolving]
  - Aphagia [Unknown]

NARRATIVE: CASE EVENT DATE: 20101130
